FAERS Safety Report 23696220 (Version 1)
Quarter: 2024Q2

REPORT INFORMATION
  Report Type: Spontaneous
  Country: GB (occurrence: GB)
  Receive Date: 20240402
  Receipt Date: 20240402
  Transmission Date: 20240716
  Serious: No
  Sender: FDA-Public Use
  Company Number: None

PATIENT
  Age: 19 Year
  Sex: Female
  Weight: 47 kg

DRUGS (2)
  1. QUETIAPINE FUMARATE [Suspect]
     Active Substance: QUETIAPINE FUMARATE
     Indication: Anxiety disorder
     Dosage: 75 MILLIGRAM, HS (TABLET)
     Route: 065
  2. NORETHINDRONE [Suspect]
     Active Substance: NORETHINDRONE
     Indication: Menstruation delayed
     Dosage: UNK, (1 5MG TABLET 3 TIMES A DAY)
     Route: 065

REACTIONS (4)
  - Disturbance in attention [Not Recovered/Not Resolved]
  - Dizziness [Not Recovered/Not Resolved]
  - Fatigue [Not Recovered/Not Resolved]
  - Dizziness [Recovered/Resolved]
